FAERS Safety Report 21187058 (Version 2)
Quarter: 2022Q3

REPORT INFORMATION
  Report Type: Report from Study
  Country: IN (occurrence: IN)
  Receive Date: 20220808
  Receipt Date: 20220826
  Transmission Date: 20221027
  Serious: No
  Sender: FDA-Public Use
  Company Number: IN-BAXTER-2022BAX013449

PATIENT
  Age: 59 Year
  Sex: Male

DRUGS (1)
  1. DIANEAL PD-2 WITH DEXTROSE [Suspect]
     Active Substance: CALCIUM CHLORIDE\DEXTROSE\MAGNESIUM CHLORIDE\SODIUM CHLORIDE\SODIUM LACTATE
     Indication: Renal failure
     Dosage: 2 L, THREE TIMES A DAY, 3 BAGS
     Route: 033

REACTIONS (3)
  - Asthenia [Recovered/Resolved]
  - Symptom recurrence [Recovered/Resolved]
  - Pyrexia [Recovered/Resolved]
